FAERS Safety Report 24772970 (Version 2)
Quarter: 2025Q1

REPORT INFORMATION
  Report Type: Spontaneous
  Country: GB (occurrence: GB)
  Receive Date: 20241225
  Receipt Date: 20250104
  Transmission Date: 20250409
  Serious: Yes (Life-Threatening, Other)
  Sender: AUROBINDO
  Company Number: GB-AUROBINDO-AUR-APL-2024-063269

PATIENT
  Age: 67 Year
  Sex: Female

DRUGS (13)
  1. LINEZOLID [Suspect]
     Active Substance: LINEZOLID
     Indication: Diabetic foot infection
     Dosage: 600 MILLIGRAM, TWO TIMES A DAY
     Route: 065
  2. LINEZOLID [Suspect]
     Active Substance: LINEZOLID
     Indication: Osteomyelitis
  3. LINEZOLID [Suspect]
     Active Substance: LINEZOLID
     Indication: Skin ulcer
  4. LINEZOLID [Suspect]
     Active Substance: LINEZOLID
     Indication: Cellulitis
  5. LINEZOLID [Suspect]
     Active Substance: LINEZOLID
     Indication: Enterococcal infection
  6. LINEZOLID [Suspect]
     Active Substance: LINEZOLID
     Indication: Proteus infection
  7. LINEZOLID [Suspect]
     Active Substance: LINEZOLID
     Indication: Staphylococcal infection
  8. HEPARIN [Suspect]
     Active Substance: HEPARIN SODIUM
     Indication: Diabetic foot infection
     Route: 065
  9. HEPARIN [Suspect]
     Active Substance: HEPARIN SODIUM
     Indication: Osteomyelitis
  10. ASPIRIN [Concomitant]
     Active Substance: ASPIRIN
     Indication: Product used for unknown indication
     Route: 065
  11. METFORMIN [Concomitant]
     Active Substance: METFORMIN HYDROCHLORIDE
     Indication: Product used for unknown indication
     Route: 065
  12. RAMIPRIL [Concomitant]
     Active Substance: RAMIPRIL
     Indication: Product used for unknown indication
     Route: 065
  13. LANSOPRAZOLE [Concomitant]
     Active Substance: LANSOPRAZOLE
     Indication: Product used for unknown indication
     Route: 065

REACTIONS (4)
  - Toxic leukoencephalopathy [Recovering/Resolving]
  - Anaemia [Recovering/Resolving]
  - Thrombocytopenia [Recovered/Resolved]
  - Leukoencephalopathy [Recovered/Resolved]
